FAERS Safety Report 9714566 (Version 2)
Quarter: 2014Q2

REPORT INFORMATION
  Report Type: Spontaneous
  Country: FR (occurrence: FR)
  Receive Date: 20131126
  Receipt Date: 20140626
  Transmission Date: 20141212
  Serious: Yes (Other)
  Sender: FDA-Public Use
  Company Number: FR-MYLANLABS-2013S1025743

PATIENT
  Age: 52 Year
  Sex: Male

DRUGS (1)
  1. FLUTAMIDE [Suspect]
     Indication: HORMONE THERAPY

REACTIONS (2)
  - Galactorrhoea [Not Recovered/Not Resolved]
  - Off label use [Not Recovered/Not Resolved]
